FAERS Safety Report 24680225 (Version 1)
Quarter: 2024Q4

REPORT INFORMATION
  Report Type: Spontaneous
  Country: US (occurrence: US)
  Receive Date: 20241129
  Receipt Date: 20241129
  Transmission Date: 20250115
  Serious: Yes (Hospitalization, Other)
  Sender: BRACCO
  Company Number: US-BRACCO-2024US03115

PATIENT
  Age: 60 Year
  Sex: Male

DRUGS (29)
  1. LUMASON [Suspect]
     Active Substance: SULFUR HEXAFLUORIDE
     Indication: Echocardiogram
     Dosage: 1 ML OF 5 ML
     Route: 042
     Dates: start: 20240521, end: 20240521
  2. LUMASON [Suspect]
     Active Substance: SULFUR HEXAFLUORIDE
     Indication: Echocardiogram
     Dosage: 1 ML OF 5 ML
     Route: 042
     Dates: start: 20240521, end: 20240521
  3. LUMASON [Suspect]
     Active Substance: SULFUR HEXAFLUORIDE
     Indication: Echocardiogram
     Dosage: 1 ML OF 5 ML
     Route: 042
     Dates: start: 20240521, end: 20240521
  4. CHOLECALCIFEROL [Concomitant]
     Active Substance: CHOLECALCIFEROL
  5. CORDARONE [Concomitant]
     Active Substance: AMIODARONE HYDROCHLORIDE
     Dosage: 360 MG / 200 ML PIGGY BACK PRE MIX
     Route: 042
  6. CRESTOR [Concomitant]
     Active Substance: ROSUVASTATIN CALCIUM
     Dosage: 10 MG TABLET
  7. DALIRESP [Concomitant]
     Active Substance: ROFLUMILAST
     Dosage: 500 MCG TABLET
  8. DELTASONE [Concomitant]
     Active Substance: PREDNISONE
     Dosage: 10 MG TABLET
  9. DUONEB [Concomitant]
     Active Substance: ALBUTEROL SULFATE\IPRATROPIUM BROMIDE
     Dosage: 0.5 MG-3 MG(2.5 MG BASE)/3 ML NEBULIZER
  10. DUONEB [Concomitant]
     Active Substance: ALBUTEROL SULFATE\IPRATROPIUM BROMIDE
     Dosage: UNK
  11. LASIX [Concomitant]
     Active Substance: FUROSEMIDE
     Dosage: 20 MG TABLET
  12. METFORMIN [Concomitant]
     Active Substance: METFORMIN HYDROCHLORIDE
     Dosage: 500MG TABLET
  13. MUCINEX [Concomitant]
     Active Substance: GUAIFENESIN
     Dosage: 600MG
  14. MUCOMYST [Concomitant]
     Active Substance: ACETYLCYSTEINE
     Dosage: 100 MG/ML (10 %) NEBULIZER SOLUTION
  15. NICODERM CQ [Concomitant]
     Active Substance: NICOTINE
     Dosage: 14 MG/24 HR PATCH
     Route: 062
  16. NICODERM CQ [Concomitant]
     Active Substance: NICOTINE
     Dosage: 21 MG/24 HR PATCH
     Route: 062
  17. NICODERM CQ [Concomitant]
     Active Substance: NICOTINE
     Dosage: 7 MG/24 HR PATCH
     Route: 062
  18. NICOTROL [Concomitant]
     Active Substance: NICOTINE
     Dosage: 10 MG
  19. PEPCID [Concomitant]
     Active Substance: FAMOTIDINE
     Dosage: 20 MG TABLET
  20. PROAIR HFA [Concomitant]
     Active Substance: ALBUTEROL SULFATE
  21. PROVENTIL [Concomitant]
     Active Substance: ALBUTEROL
     Dosage: 2.5 MG /3 ML (0.083 %) NEBULIZATION
  22. ROBITUSSIN (GUAIFENESIN) [Concomitant]
     Active Substance: GUAIFENESIN
     Dosage: 10MG/5ML
     Route: 048
  23. SINGULAIR [Concomitant]
     Active Substance: MONTELUKAST SODIUM
     Dosage: 10 MG TABLET
  24. SPIRIVA RESPIMAT [Concomitant]
     Active Substance: TIOTROPIUM BROMIDE
     Dosage: 18 MCG INHALATION CAP
  25. SPIRIVA RESPIMAT [Concomitant]
     Active Substance: TIOTROPIUM BROMIDE
     Dosage: 2.5 MCG/ACUTATION INHALER
  26. SYMBICORT [Concomitant]
     Active Substance: BUDESONIDE\FORMOTEROL FUMARATE DIHYDRATE
     Dosage: 160-4.5 MCG/ACTUATION INHALER
  27. THEO-DUR [Concomitant]
     Active Substance: THEOPHYLLINE ANHYDROUS
     Dosage: 600MG TABLET IN ER (12 HR)
  28. THEOPHYLLINE [Concomitant]
     Active Substance: THEOPHYLLINE
     Dosage: 80 MG/15 ML
  29. ZESTORETIC [Concomitant]
     Active Substance: HYDROCHLOROTHIAZIDE\LISINOPRIL
     Dosage: 20-25 MG PER TABLET

REACTIONS (1)
  - Contrast media reaction [Recovered/Resolved]

NARRATIVE: CASE EVENT DATE: 20240521
